FAERS Safety Report 7917606-5 (Version None)
Quarter: 2011Q4

REPORT INFORMATION
  Report Type: 
  Country: None (occurrence: None)
  Receive Date: 20111116
  Receipt Date: 20111107
  Transmission Date: 20120403
  Serious: Yes (Other)
  Sender: FDA-Public Use
  Company Number: CA-ASTRAZENECA-2006UW27345

PATIENT
  Age: 75 Year
  Sex: Male
  Weight: 86.2 kg

DRUGS (13)
  1. INSULIN (NOVOLIN NPH) [Concomitant]
     Indication: DIABETES MELLITUS
     Dosage: 45 UNITS TWO TIMES A DAY
     Dates: start: 19760101
  2. CRESTOR [Suspect]
     Indication: BLOOD CHOLESTEROL INCREASED
     Route: 048
     Dates: start: 20030101
  3. QUININE SULFATE [Concomitant]
     Indication: MALARIA PROPHYLAXIS
     Route: 048
     Dates: start: 19980101
  4. NIASPAN [Interacting]
     Route: 048
  5. NOVOLIN GE NPH INJ SUS [Concomitant]
     Route: 058
  6. NOVO-HYDRAZIDE [Concomitant]
     Indication: HYPERTENSION
     Route: 048
     Dates: start: 19960101
  7. RATIO-OXYCODIN [Concomitant]
     Indication: PAIN
     Dates: start: 19980101
  8. ASAPHEN [Concomitant]
     Indication: THROMBOSIS PROPHYLAXIS
     Route: 048
     Dates: start: 20030101
  9. ADALAT [Concomitant]
     Indication: HYPERTENSION
     Route: 048
     Dates: start: 19980101
  10. OXYCODONE HCL [Concomitant]
  11. NIASPAN [Interacting]
     Indication: BLOOD CHOLESTEROL INCREASED
     Route: 048
     Dates: start: 20061001, end: 20061015
  12. PANTOPRAZOLE SODIUM [Concomitant]
     Indication: GASTROOESOPHAGEAL REFLUX DISEASE
     Route: 048
     Dates: start: 20030101
  13. ADALAT CC [Concomitant]

REACTIONS (5)
  - DRUG INTERACTION [None]
  - ABASIA [None]
  - GAIT DISTURBANCE [None]
  - PARALYSIS [None]
  - DYSSTASIA [None]
